FAERS Safety Report 22256515 (Version 4)
Quarter: 2023Q4

REPORT INFORMATION
  Report Type: Report from Study
  Country: US (occurrence: US)
  Receive Date: 20230426
  Receipt Date: 20231123
  Transmission Date: 20240110
  Serious: Yes (Hospitalization, Other)
  Sender: FDA-Public Use
  Company Number: US-PAREXEL-2021-KAM-US003429

PATIENT
  Sex: Male
  Weight: 129.25 kg

DRUGS (37)
  1. GLASSIA [Suspect]
     Active Substance: .ALPHA.1-PROTEINASE INHIBITOR HUMAN
     Indication: Alpha-1 antitrypsin deficiency
     Dosage: 60 MILLIGRAM/KILOGRAM, 1/WEEK
     Route: 042
     Dates: start: 20151005
  2. GLASSIA [Suspect]
     Active Substance: .ALPHA.1-PROTEINASE INHIBITOR HUMAN
     Indication: Alpha-1 antitrypsin deficiency
     Dosage: 60 MILLIGRAM/KILOGRAM, 1/WEEK
     Route: 042
     Dates: start: 20151005
  3. DIPHENHYDRAMINE [Concomitant]
     Active Substance: DIPHENHYDRAMINE
     Dosage: UNK
     Route: 065
  4. ALBUTEROL SULFATE [Concomitant]
     Active Substance: ALBUTEROL SULFATE
     Dosage: UNK
  5. SYMBICORT [Concomitant]
     Active Substance: BUDESONIDE\FORMOTEROL FUMARATE DIHYDRATE
     Dosage: UNK
     Route: 065
  6. SIMPLY SALINE [Concomitant]
     Dosage: UNK
     Route: 065
  7. GLIMEPIRIDE [Concomitant]
     Active Substance: GLIMEPIRIDE
     Dosage: UNK
     Route: 065
  8. SODIUM CHLORIDE [Concomitant]
     Active Substance: SODIUM CHLORIDE
     Dosage: UNK
     Route: 065
  9. EPINEPHRINE [Concomitant]
     Active Substance: EPINEPHRINE
     Dosage: UNK
     Route: 065
  10. EVENING PRIMROSE [Concomitant]
     Dosage: UNK
     Route: 065
  11. ATORVASTATIN CALCIUM [Concomitant]
     Active Substance: ATORVASTATIN CALCIUM
     Dosage: UNK
  12. FUROSEMIDE [Concomitant]
     Active Substance: FUROSEMIDE
     Dosage: UNK
     Route: 065
  13. FLUTICASONE PROPIONATE [Concomitant]
     Active Substance: FLUTICASONE PROPIONATE
     Dosage: UNK
  14. GABAPENTIN [Concomitant]
     Active Substance: GABAPENTIN
     Dosage: UNK
  15. ZYRTEC [Concomitant]
     Active Substance: CETIRIZINE HYDROCHLORIDE
     Dosage: UNK
     Route: 065
  16. OXYGEN [Concomitant]
     Active Substance: OXYGEN
     Dosage: UNK
     Route: 065
  17. TRAZODONE HCL [Concomitant]
     Active Substance: TRAZODONE HYDROCHLORIDE
     Dosage: UNK
  18. METFORMIN HYDROCHLORIDE [Concomitant]
     Active Substance: METFORMIN HYDROCHLORIDE
     Dosage: UNK
  19. ZINC [Concomitant]
     Active Substance: PYRITHIONE ZINC\ZINC\ZINC CHLORIDE
     Dosage: UNK
     Route: 065
  20. ASPIRIN [Concomitant]
     Active Substance: ASPIRIN
     Dosage: UNK
     Route: 065
  21. ALBUTEROL SULFATE [Concomitant]
     Active Substance: ALBUTEROL SULFATE
     Dosage: UNK
  22. ALPRAZOLAM [Concomitant]
     Active Substance: ALPRAZOLAM
     Dosage: UNK
     Route: 065
  23. FISH OIL [Concomitant]
     Active Substance: FISH OIL
     Dosage: UNK
     Route: 065
  24. DONEPEZIL HYDROCHLORIDE [Concomitant]
     Active Substance: DONEPEZIL HYDROCHLORIDE
     Dosage: UNK
  25. POTASSIUM CHLORIDE [Concomitant]
     Active Substance: POTASSIUM CHLORIDE
     Dosage: UNK
  26. INCRUSE ELLIPTA [Concomitant]
     Active Substance: UMECLIDINIUM BROMIDE
     Dosage: UNK
     Route: 065
  27. CELEXA [Concomitant]
     Active Substance: CITALOPRAM HYDROBROMIDE
     Dosage: UNK
     Route: 065
  28. FEXOFENADINE HYDROCHLORIDE [Concomitant]
     Active Substance: FEXOFENADINE HYDROCHLORIDE
     Dosage: UNK
  29. MUCINEX [Concomitant]
     Active Substance: GUAIFENESIN
     Dosage: UNK
     Route: 065
  30. TAMSULOSIN HYDROCHLORIDE [Concomitant]
     Active Substance: TAMSULOSIN HYDROCHLORIDE
  31. LIDOCAINE [Concomitant]
     Active Substance: LIDOCAINE
     Dosage: UNK
     Route: 065
  32. LISINOPRIL [Concomitant]
     Active Substance: LISINOPRIL
     Dosage: UNK
     Route: 065
  33. MUPIROCIN [Concomitant]
     Active Substance: MUPIROCIN
     Dosage: UNK
     Route: 065
  34. DONEPEZIL [Concomitant]
     Active Substance: DONEPEZIL
     Dosage: UNK
     Route: 065
  35. FLONASE [Concomitant]
     Active Substance: FLUTICASONE PROPIONATE
     Dosage: UNK
     Route: 065
  36. VENTOLIN [Concomitant]
     Active Substance: ALBUTEROL SULFATE
     Dosage: UNK
     Route: 065
  37. COENZYME Q10 [Concomitant]
     Active Substance: DIETARY SUPPLEMENT\UBIDECARENONE
     Dosage: UNK
     Route: 065

REACTIONS (8)
  - Pneumonia [Unknown]
  - Sinus disorder [Unknown]
  - Multiple allergies [Unknown]
  - Bronchitis [Unknown]
  - Sinusitis [Unknown]
  - Headache [Recovered/Resolved]
  - Dizziness [Unknown]
  - Fall [Unknown]
